FAERS Safety Report 19273272 (Version 2)
Quarter: 2022Q2

REPORT INFORMATION
  Report Type: Spontaneous
  Country: CA (occurrence: CA)
  Receive Date: 20210519
  Receipt Date: 20220408
  Transmission Date: 20220721
  Serious: Yes (Other)
  Sender: FDA-Public Use
  Company Number: None

PATIENT
  Age: 24 Year
  Sex: Female

DRUGS (1)
  1. PROTOPIC [Suspect]
     Active Substance: TACROLIMUS
     Indication: Dermatitis
     Dosage: 2 EVERY 1 DAYS
     Route: 061

REACTIONS (4)
  - Nausea [Unknown]
  - Pyrexia [Unknown]
  - Rash [Unknown]
  - Feeling hot [Unknown]
